FAERS Safety Report 7534658-5 (Version None)
Quarter: 2011Q2

REPORT INFORMATION
  Report Type: 
  Country: None (occurrence: None)
  Receive Date: 20110609
  Receipt Date: 20110307
  Transmission Date: 20111010
  Serious: Yes (Hospitalization)
  Sender: FDA-Public Use
  Company Number: PHHO2007DE21087

PATIENT
  Sex: Male
  Weight: 54 kg

DRUGS (2)
  1. PLACEBO [Suspect]
     Indication: CARCINOID TUMOUR
     Dosage: PLACEBO
     Route: 048
     Dates: start: 20070704
  2. SANDOSTATIN LAR [Suspect]
     Dosage: DOUBLE BLIND
     Dates: start: 20070704

REACTIONS (22)
  - PORTAL VEIN THROMBOSIS [None]
  - ILIAC ARTERY THROMBOSIS [None]
  - NEUROENDOCRINE CARCINOMA [None]
  - C-REACTIVE PROTEIN INCREASED [None]
  - RENAL ATROPHY [None]
  - NEPHROLITHIASIS [None]
  - METASTASES TO RETROPERITONEUM [None]
  - RENAL FAILURE [None]
  - SUBILEUS [None]
  - METASTASES TO LYMPH NODES [None]
  - PORTAL HYPERTENSION [None]
  - GASTRIC DILATATION [None]
  - VASCULAR PURPURA [None]
  - ADHESION [None]
  - HEPATITIS [None]
  - NAUSEA [None]
  - DUODENAL STENOSIS [None]
  - PANCREATIC CARCINOMA [None]
  - ASCITES [None]
  - HAEMANGIOMA [None]
  - NEOPLASM MALIGNANT [None]
  - ADRENAL DISORDER [None]
